FAERS Safety Report 12458229 (Version 1)
Quarter: 2016Q2

REPORT INFORMATION
  Report Type: Spontaneous
  Country: US (occurrence: US)
  Receive Date: 20160613
  Receipt Date: 20160613
  Transmission Date: 20160815
  Serious: No
  Sender: FDA-Public Use
  Company Number: US-BIOGEN-2016BI00247065

PATIENT
  Age: 45 Year
  Sex: Male
  Weight: 83.08 kg

DRUGS (1)
  1. TECFIDERA [Suspect]
     Active Substance: DIMETHYL FUMARATE
     Indication: PRODUCT USED FOR UNKNOWN INDICATION
     Route: 048
     Dates: end: 201604

REACTIONS (1)
  - Hemiplegia [Recovered/Resolved]

NARRATIVE: CASE EVENT DATE: 201604
